FAERS Safety Report 18280383 (Version 1)
Quarter: 2020Q3

REPORT INFORMATION
  Report Type: Report from Study
  Country: None (occurrence: US)
  Receive Date: 20200918
  Receipt Date: 20200918
  Transmission Date: 20201103
  Serious: Yes (Other)
  Sender: FDA-Public Use
  Company Number: US-ABBVIE-20K-163-3567031-00

PATIENT
  Sex: Male

DRUGS (2)
  1. HUMIRA [Suspect]
     Active Substance: ADALIMUMAB
     Route: 058
  2. HUMIRA [Suspect]
     Active Substance: ADALIMUMAB
     Indication: CROHN^S DISEASE
     Route: 058
     Dates: start: 2006, end: 2017

REACTIONS (11)
  - Intestinal obstruction [Recovered/Resolved]
  - Crohn^s disease [Recovered/Resolved]
  - Herpes zoster [Recovered/Resolved]
  - Fistula [Not Recovered/Not Resolved]
  - Hepatic enzyme increased [Unknown]
  - Viral infection [Unknown]
  - Therapeutic product effect decreased [Unknown]
  - Laryngospasm [Recovered/Resolved]
  - Nephrolithiasis [Recovered/Resolved]
  - Hepatic enzyme increased [Recovered/Resolved]
  - Abscess [Not Recovered/Not Resolved]
